FAERS Safety Report 24793621 (Version 2)
Quarter: 2025Q4

REPORT INFORMATION
  Report Type: Report from Study
  Country: EU (occurrence: None)
  Receive Date: 20241231
  Receipt Date: 20251223
  Transmission Date: 20260118
  Serious: Yes (Congenital Anomaly)
  Sender: UCB
  Company Number: EU-UCBSA-2024068167

PATIENT

DRUGS (3)
  1. LEVETIRACETAM [Suspect]
     Active Substance: LEVETIRACETAM
     Indication: Product used for unknown indication
     Dosage: 4000 MILLIGRAM DAILY
  2. LACOSAMIDE [Suspect]
     Active Substance: LACOSAMIDE
     Indication: Product used for unknown indication
     Dosage: 350 MILLIGRAM DAILY
  3. LAMOTRIGINE [Concomitant]
     Active Substance: LAMOTRIGINE
     Indication: Product used for unknown indication
     Dosage: UNK

REACTIONS (2)
  - Kidney duplex [Unknown]
  - Maternal exposure during pregnancy [Unknown]
